FAERS Safety Report 11108864 (Version 2)
Quarter: 2015Q2

REPORT INFORMATION
  Report Type: Spontaneous
  Country: FR (occurrence: FR)
  Receive Date: 20150513
  Receipt Date: 20150516
  Transmission Date: 20150821
  Serious: Yes (Death, Hospitalization, Other)
  Sender: FDA-Public Use
  Company Number: FR-AUROBINDO-AUR-APL-2015-04056

PATIENT
  Age: 31 Year
  Sex: Male

DRUGS (4)
  1. TRAMADOL [Suspect]
     Active Substance: TRAMADOL
     Indication: PRODUCT USED FOR UNKNOWN INDICATION
     Dosage: UNK
     Route: 065
  2. ACETAMINOPHEN. [Concomitant]
     Active Substance: ACETAMINOPHEN
     Indication: PRODUCT USED FOR UNKNOWN INDICATION
     Dosage: UNK
     Route: 065
  3. LIDOCAINE. [Concomitant]
     Active Substance: LIDOCAINE
     Indication: PRODUCT USED FOR UNKNOWN INDICATION
     Dosage: UNK
     Route: 065
  4. HYDROXYZINE [Concomitant]
     Active Substance: HYDROXYZINE\HYDROXYZINE HYDROCHLORIDE
     Indication: PRODUCT USED FOR UNKNOWN INDICATION
     Dosage: UNK
     Route: 065

REACTIONS (25)
  - Cardio-respiratory arrest [Unknown]
  - Electrocardiogram QT prolonged [Unknown]
  - Blood pressure decreased [Unknown]
  - Chills [Unknown]
  - Rhabdomyolysis [Unknown]
  - Hypokalaemia [Unknown]
  - Drug withdrawal syndrome [Unknown]
  - Acute kidney injury [Unknown]
  - Ventricular extrasystoles [Unknown]
  - Hyperthermia [Unknown]
  - Oxygen saturation abnormal [Unknown]
  - Headache [Unknown]
  - Adrenergic syndrome [Unknown]
  - Generalised tonic-clonic seizure [Unknown]
  - Hyperhidrosis [Unknown]
  - Drug level increased [Unknown]
  - Drug interaction [Unknown]
  - Body temperature increased [Unknown]
  - Nausea [Unknown]
  - Overdose [Fatal]
  - Serotonin syndrome [Unknown]
  - Conduction disorder [Unknown]
  - Haemodynamic instability [Unknown]
  - Acidosis [Unknown]
  - General physical condition abnormal [Unknown]
